FAERS Safety Report 13359332 (Version 1)
Quarter: 2017Q1

REPORT INFORMATION
  Report Type: Spontaneous
  Country: GB (occurrence: GB)
  Receive Date: 20170322
  Receipt Date: 20170322
  Transmission Date: 20170429
  Serious: Yes (Death, Hospitalization, Other)
  Sender: FDA-Public Use
  Company Number: GB-PFIZER INC-2017119533

PATIENT
  Age: 24 Year
  Sex: Female
  Weight: 104 kg

DRUGS (8)
  1. CLOZARIL [Suspect]
     Active Substance: CLOZAPINE
     Indication: SCHIZOPHRENIA
     Dosage: 125 MG, 1X/DAY (125 MG, PM)
     Route: 048
     Dates: start: 20150213
  2. CLOZARIL [Suspect]
     Active Substance: CLOZAPINE
     Dosage: 150 MG, 1X/DAY (150 MG, AM)
     Route: 048
     Dates: start: 20071009
  3. SERTRALINE HCL [Suspect]
     Active Substance: SERTRALINE HYDROCHLORIDE
     Dosage: 150 MG, 1X/DAY (150 MG, QD)
     Route: 048
     Dates: start: 20101129
  4. PROPRANOLOL [Concomitant]
     Active Substance: PROPRANOLOL HYDROCHLORIDE
     Dosage: 20 MG, 2X/DAY (20 MG, BID)
     Route: 048
     Dates: start: 20101129
  5. DEPAKOTE [Suspect]
     Active Substance: DIVALPROEX SODIUM
     Dosage: 1000 MG, 2X/DAY (1000 MG, BID)
     Route: 048
     Dates: start: 20101129
  6. METFORMIN [Concomitant]
     Active Substance: METFORMIN HYDROCHLORIDE
     Dosage: 1 G, 2X/DAY (1 G, BID)
     Route: 048
     Dates: start: 20160629
  7. HYOSCINE HYDROBROMIDE [Suspect]
     Active Substance: SCOPOLAMINE
     Dosage: 300 UG, 2X/DAY (300 ?G, BID)
     Route: 048
     Dates: start: 20150925
  8. CERAZETTE [Concomitant]
     Active Substance: DESOGESTREL
     Dosage: 75 UG, 1X/DAY (75 ?G, QD)
     Route: 048
     Dates: start: 20160425

REACTIONS (7)
  - Death [Fatal]
  - Sepsis [Unknown]
  - Pneumonia [Not Recovered/Not Resolved]
  - Hepatic steatosis [Unknown]
  - Aggression [Recovering/Resolving]
  - Diabetes mellitus [Unknown]
  - Intentional self-injury [Recovering/Resolving]

NARRATIVE: CASE EVENT DATE: 20161128
